FAERS Safety Report 5043907-7 (Version None)
Quarter: 2006Q2

REPORT INFORMATION
  Report Type: 
  Country: None (occurrence: None)
  Receive Date: 20060629
  Receipt Date: 20060616
  Transmission Date: 20061013
  Serious: Yes (Disabling, Congenital Anomaly)
  Sender: FDA-Public Use
  Company Number: SPV1-2006-00121

PATIENT
  Sex: Male

DRUGS (4)
  1. PENTASA [Suspect]
     Indication: CROHN'S DISEASE
     Dosage: 2000 MG DAILY TRANSPLACENTAL
     Route: 064
     Dates: start: 20030911, end: 20040519
  2. GAVISCON (SODIUM BICARBONATE, ALGINIC ACID, SODIUM ALGINATE, MAGNESIUM [Concomitant]
  3. KARDEGIC                  (ACETYLSALICYLIC LYSINE, ACETYLSALICYLIC ACI [Concomitant]
  4. ZYMAFLUOR                  (SODIUM FLORIDE) [Concomitant]

REACTIONS (3)
  - DRUG EXPOSURE DURING PREGNANCY [None]
  - PREMATURE RUPTURE OF MEMBRANES [None]
  - RENAL APLASIA [None]
